FAERS Safety Report 20689286 (Version 5)
Quarter: 2022Q4

REPORT INFORMATION
  Report Type: Report from Study
  Country: DE (occurrence: DE)
  Receive Date: 20220408
  Receipt Date: 20221025
  Transmission Date: 20230112
  Serious: Yes (Hospitalization)
  Sender: FDA-Public Use
  Company Number: DE-GLAXOSMITHKLINE-DE2022GSK059735

PATIENT

DRUGS (5)
  1. NIRAPARIB [Suspect]
     Active Substance: NIRAPARIB
     Indication: Ovarian cancer
     Dosage: 200 MG
     Route: 048
     Dates: start: 20210805, end: 20220219
  2. NIRAPARIB [Suspect]
     Active Substance: NIRAPARIB
     Indication: Fallopian tube cancer
  3. NIRAPARIB [Suspect]
     Active Substance: NIRAPARIB
     Indication: Malignant peritoneal neoplasm
  4. CARBOPLATIN [Concomitant]
     Active Substance: CARBOPLATIN
     Indication: Surgery
     Dosage: 650 MG, NMBER OF 3 CYCLE
     Dates: start: 20210510, end: 20210621
  5. PACLITAXEL [Concomitant]
     Active Substance: PACLITAXEL
     Indication: Surgery
     Dosage: 279 MG, NUMBER OF 3 CYCLE
     Dates: start: 20210510, end: 20210621

REACTIONS (4)
  - Malaise [Recovered/Resolved]
  - Dizziness [Recovered/Resolved]
  - Dizziness [Recovered/Resolved]
  - Dyspnoea [Recovered/Resolved]

NARRATIVE: CASE EVENT DATE: 20220126
